FAERS Safety Report 10146684 (Version 1)
Quarter: 2014Q2

REPORT INFORMATION
  Report Type: Spontaneous
  Country: US (occurrence: US)
  Receive Date: 20140501
  Receipt Date: 20140501
  Transmission Date: 20141212
  Serious: No
  Sender: FDA-Public Use
  Company Number: US-PFIZER INC-2014120431

PATIENT
  Age: 71 Year
  Sex: Male
  Weight: 88.89 kg

DRUGS (2)
  1. LYRICA [Suspect]
     Indication: SPINAL COLUMN STENOSIS
     Dosage: 75 MG, DAILY
     Dates: start: 20140424
  2. ZOCOR [Concomitant]
     Indication: BLOOD CHOLESTEROL INCREASED
     Dosage: 80 MG, DAILY

REACTIONS (1)
  - Weight increased [Not Recovered/Not Resolved]
